FAERS Safety Report 5599776-X (Version None)
Quarter: 2008Q1

REPORT INFORMATION
  Report Type: 
  Country: None (occurrence: None)
  Receive Date: 20080123
  Receipt Date: 20080117
  Transmission Date: 20080703
  Serious: Yes (Hospitalization)
  Sender: FDA-Public Use
  Company Number: SE-BRISTOL-MYERS SQUIBB COMPANY-14044473

PATIENT
  Age: 80 Year
  Sex: Female

DRUGS (1)
  1. BUSPAR [Suspect]
     Indication: DEPRESSION
     Dates: end: 20071201

REACTIONS (3)
  - FALL [None]
  - FEMUR FRACTURE [None]
  - NIGHTMARE [None]
